FAERS Safety Report 16288663 (Version 1)
Quarter: 2019Q2

REPORT INFORMATION
  Report Type: Spontaneous
  Country: US (occurrence: US)
  Receive Date: 20190509
  Receipt Date: 20190509
  Transmission Date: 20190711
  Serious: Yes (Hospitalization, Other)
  Sender: FDA-Public Use
  Company Number: US-AUROBINDO-AUR-APL-2019-025541

PATIENT

DRUGS (2)
  1. PREDNISONE. [Suspect]
     Active Substance: PREDNISONE
     Indication: SARCOIDOSIS
     Dosage: 5 MILLIGRAM, ONCE A DAY
     Route: 065
  2. METHOTREXATE. [Suspect]
     Active Substance: METHOTREXATE
     Indication: SARCOIDOSIS
     Dosage: 15 MILLIGRAM, EVERY WEEK
     Route: 065

REACTIONS (8)
  - Skin ulcer [Recovering/Resolving]
  - Pseudomonas infection [Recovering/Resolving]
  - Stenotrophomonas infection [Recovering/Resolving]
  - Epidermal necrosis [Recovering/Resolving]
  - Cutaneous vasculitis [Recovering/Resolving]
  - Herpes zoster [Recovering/Resolving]
  - Enterococcal infection [Recovering/Resolving]
  - Escherichia infection [Recovering/Resolving]
